FAERS Safety Report 13510193 (Version 3)
Quarter: 2017Q2

REPORT INFORMATION
  Report Type: Spontaneous
  Country: US (occurrence: US)
  Receive Date: 20170503
  Receipt Date: 20170613
  Transmission Date: 20170830
  Serious: Yes (Other)
  Sender: FDA-Public Use
  Company Number: US-PFIZER INC-2017191843

PATIENT
  Age: 72 Year
  Sex: Female
  Weight: 80.74 kg

DRUGS (6)
  1. HYDROCORTISONE. [Suspect]
     Active Substance: HYDROCORTISONE
     Dosage: 10 %, UNK
  2. KETAMINE HCL [Suspect]
     Active Substance: KETAMINE HYDROCHLORIDE
     Indication: PERSISTENT GENITAL AROUSAL DISORDER
     Dosage: 1 G, 4X/DAY
     Route: 067
     Dates: start: 20170207, end: 20170210
  3. CYCLOBENZAPRINE. [Suspect]
     Active Substance: CYCLOBENZAPRINE
     Indication: PERSISTENT GENITAL AROUSAL DISORDER
     Dosage: 1 G, 4X/DAY
     Route: 067
     Dates: start: 20170207, end: 20170210
  4. LIDOCAINE HCL [Suspect]
     Active Substance: LIDOCAINE HYDROCHLORIDE
     Indication: PERSISTENT GENITAL AROUSAL DISORDER
     Dosage: 1 G, 4X/DAY
     Route: 067
     Dates: start: 20170207, end: 20170210
  5. GABAPENTIN. [Suspect]
     Active Substance: GABAPENTIN
     Indication: PERSISTENT GENITAL AROUSAL DISORDER
     Dosage: 1 G, 4X/DAY
     Route: 067
     Dates: start: 20170207, end: 20170210
  6. HYDROCORTISONE. [Suspect]
     Active Substance: HYDROCORTISONE
     Indication: PERSISTENT GENITAL AROUSAL DISORDER
     Dosage: 1 G, 4X/DAY
     Route: 067
     Dates: start: 20170207, end: 20170210

REACTIONS (6)
  - Product use issue [Unknown]
  - Product use in unapproved indication [Unknown]
  - Skin injury [Recovered/Resolved]
  - Vulvovaginal discomfort [Recovered/Resolved]
  - Vulvovaginal injury [Recovered/Resolved]
  - Thermal burn [Recovered/Resolved]

NARRATIVE: CASE EVENT DATE: 20170207
